FAERS Safety Report 10603243 (Version 2)
Quarter: 2014Q4

REPORT INFORMATION
  Report Type: Report from Study
  Country: GB (occurrence: GB)
  Receive Date: 20141124
  Receipt Date: 20141128
  Transmission Date: 20150529
  Serious: Yes (Other)
  Sender: FDA-Public Use
  Company Number: GB-ONYX-2014-2523

PATIENT
  Age: 81 Year
  Sex: Female
  Weight: 55 kg

DRUGS (22)
  1. MELPHALAN [Suspect]
     Active Substance: MELPHALAN
     Indication: PLASMA CELL MYELOMA
     Route: 048
     Dates: start: 20140225, end: 20140521
  2. ASPIRIN. [Concomitant]
     Active Substance: ASPIRIN
     Indication: EPISTAXIS
     Route: 048
     Dates: start: 20140423
  3. MELPHALAN [Suspect]
     Active Substance: MELPHALAN
     Route: 048
     Dates: start: 20140522, end: 20140523
  4. MELPHALAN [Suspect]
     Active Substance: MELPHALAN
     Route: 048
     Dates: start: 20140710
  5. NYSTATIN. [Concomitant]
     Active Substance: NYSTATIN
     Indication: ANTIFUNGAL PROPHYLAXIS
     Route: 048
     Dates: start: 20140225
  6. ONDANSETRON [Concomitant]
     Active Substance: ONDANSETRON
     Indication: PREMEDICATION
     Route: 042
     Dates: start: 20140225
  7. LOPERAMIDE [Concomitant]
     Active Substance: LOPERAMIDE
     Indication: DIARRHOEA
     Route: 048
     Dates: start: 20140225
  8. APREPITANT. [Concomitant]
     Active Substance: APREPITANT
     Indication: VOMITING
  9. CARFILZOMIB [Suspect]
     Active Substance: CARFILZOMIB
     Route: 042
     Dates: start: 20140304, end: 20140326
  10. CARFILZOMIB [Suspect]
     Active Substance: CARFILZOMIB
     Route: 042
     Dates: start: 20140408, end: 20140911
  11. PREDNISONE. [Suspect]
     Active Substance: PREDNISONE
     Indication: PLASMA CELL MYELOMA
     Route: 048
     Dates: start: 20140225
  12. SODIUM CHLORIDE 0.9% [Concomitant]
     Active Substance: SODIUM CHLORIDE
     Indication: PREMEDICATION
     Route: 042
     Dates: start: 20140225
  13. GLUCOSE 5% [Concomitant]
     Active Substance: DEXTROSE
     Indication: PREMEDICATION
     Route: 042
     Dates: start: 20140225
  14. TIMOLOL [Concomitant]
     Active Substance: TIMOLOL
     Indication: ANGINA PECTORIS
  15. CHLORHEXIDINE/NEOMYCIN CREAM (NASEPTIN) [Concomitant]
     Indication: EPISTAXIS
     Route: 061
     Dates: start: 20140423
  16. GLYCERYL TRINITRATE [Concomitant]
     Active Substance: NITROGLYCERIN
     Indication: PROPHYLAXIS
     Route: 060
     Dates: start: 20071015
  17. ACICLOVIR [Concomitant]
     Active Substance: ACYCLOVIR
     Indication: ANTIVIRAL PROPHYLAXIS
     Route: 048
     Dates: start: 20140317
  18. CARFILZOMIB [Suspect]
     Active Substance: CARFILZOMIB
     Indication: PLASMA CELL MYELOMA
     Route: 042
     Dates: start: 20140225, end: 20140226
  19. DOMPERIDONE [Concomitant]
     Active Substance: DOMPERIDONE
     Indication: PROPHYLAXIS OF NAUSEA AND VOMITING
     Route: 048
     Dates: start: 20140225
  20. TIMOLOL [Concomitant]
     Active Substance: TIMOLOL
     Indication: PROPHYLAXIS
     Route: 048
     Dates: start: 20020508
  21. GLYCERYL TRINITRATE [Concomitant]
     Active Substance: NITROGLYCERIN
     Indication: ANGINA PECTORIS
  22. APREPITANT. [Concomitant]
     Active Substance: APREPITANT
     Indication: NAUSEA
     Route: 048
     Dates: start: 20140730

REACTIONS (1)
  - Atrial fibrillation [Unknown]

NARRATIVE: CASE EVENT DATE: 20141001
